FAERS Safety Report 7311566-6 (Version None)
Quarter: 2011Q1

REPORT INFORMATION
  Report Type: 
  Country: None (occurrence: None)
  Receive Date: 20110224
  Receipt Date: 20110216
  Transmission Date: 20110831
  Serious: Yes (Other)
  Sender: FDA-Public Use
  Company Number: IT-B.I. PHARMACEUTICALS,INC./RIDGEFIELD-2011-IT-00034IT

PATIENT
  Sex: Male

DRUGS (5)
  1. NITROGLYCERIN [Suspect]
     Dates: start: 20100105, end: 20110104
  2. CATAPRESAN TTS [Suspect]
     Dates: start: 20100105, end: 20110104
  3. BISOPROLOL EMIFUMARATE [Suspect]
     Dosage: 2.5 MG
     Route: 048
     Dates: start: 20100105, end: 20110104
  4. VALPRESSION [Suspect]
     Dosage: 80 MG
     Route: 048
     Dates: start: 20100105, end: 20110104
  5. FUROSEMIDE [Suspect]
     Dosage: 100 MG
     Route: 048
     Dates: start: 20100105, end: 20110104

REACTIONS (2)
  - DEHYDRATION [None]
  - HYPOTENSION [None]
